FAERS Safety Report 14773666 (Version 2)
Quarter: 2020Q1

REPORT INFORMATION
  Report Type: Spontaneous
  Country: PT (occurrence: PT)
  Receive Date: 20180418
  Receipt Date: 20200202
  Transmission Date: 20200409
  Serious: Yes (Other)
  Sender: FDA-Public Use
  Company Number: PHHY2018PT001515

PATIENT
  Age: 17 Year

DRUGS (2)
  1. AMOXICILLIN+CLAVULANATE [Suspect]
     Active Substance: AMOXICILLIN\CLAVULANATE POTASSIUM
     Indication: PRODUCT USED FOR UNKNOWN INDICATION
     Dosage: 300 MG, UNK
     Route: 048
  2. IBUPROFEN. [Suspect]
     Active Substance: IBUPROFEN
     Indication: DRUG PROVOCATION TEST
     Dosage: 40 MG
     Route: 048

REACTIONS (12)
  - Urticaria [Recovered/Resolved]
  - Oedema peripheral [Unknown]
  - Type I hypersensitivity [Unknown]
  - Flushing [Unknown]
  - Off label use [Unknown]
  - Rash [Unknown]
  - Drug hypersensitivity [Unknown]
  - Product use in unapproved indication [Unknown]
  - Palmar erythema [Unknown]
  - Generalised oedema [Unknown]
  - Lip oedema [Unknown]
  - Hypoaesthesia [Unknown]

NARRATIVE: CASE EVENT DATE: 20150101
